FAERS Safety Report 4776345-2 (Version None)
Quarter: 2005Q3

REPORT INFORMATION
  Report Type: 
  Country: None (occurrence: None)
  Receive Date: 20050921
  Receipt Date: 20050902
  Transmission Date: 20060218
  Serious: Yes (Hospitalization)
  Sender: FDA-Public Use
  Company Number: DE_050616142

PATIENT
  Age: 63 Year
  Sex: Male
  Weight: 76 kg

DRUGS (6)
  1. CIALIS [Suspect]
     Indication: POST PROCEDURAL COMPLICATION
     Dosage: 20 MG
     Dates: start: 20040601, end: 20041001
  2. CIALIS [Suspect]
     Indication: PROSTATE CANCER
     Dosage: 20 MG
     Dates: start: 20040601, end: 20041001
  3. CIALIS [Suspect]
     Indication: PROSTATECTOMY
     Dosage: 20 MG
     Dates: start: 20040601, end: 20041001
  4. THYROXIN                  (LEVOTHYROXINE SODIUM) [Concomitant]
  5. ACETYLSALICYLIC ACID SRT [Concomitant]
  6. MAGNETIC FIELD THERAPY [Concomitant]

REACTIONS (1)
  - GRAND MAL CONVULSION [None]
